FAERS Safety Report 6559426-2 (Version None)
Quarter: 2010Q1

REPORT INFORMATION
  Report Type: 
  Country: None (occurrence: None)
  Receive Date: 20100129
  Receipt Date: 20090831
  Transmission Date: 20100710
  Serious: Yes (Other)
  Sender: FDA-Public Use
  Company Number: US-ABBOTT-09P-163-0594529-00

PATIENT
  Sex: Female
  Weight: 56.75 kg

DRUGS (14)
  1. HUMIRA [Suspect]
     Indication: CROHN'S DISEASE
     Dates: start: 20080201
  2. WELCHOL [Concomitant]
     Indication: ANTIDIARRHOEAL SUPPORTIVE CARE
  3. SYMAX [Concomitant]
     Indication: PROPHYLAXIS AGAINST DIARRHOEA
  4. HYOSCYAMINE [Concomitant]
     Indication: ABDOMINAL PAIN
  5. PREMARIN [Concomitant]
     Indication: HYSTERECTOMY
  6. PAXIL [Concomitant]
     Indication: ANXIETY
  7. PAXIL [Concomitant]
     Indication: DEPRESSION
  8. POTASSIUM CITRATE [Concomitant]
     Indication: NEPHROLITHIASIS
  9. CALCIUM W/VITAMIN D [Concomitant]
     Indication: OSTEOPENIA
  10. MULTI-VITAMIN [Concomitant]
     Indication: DRUG USE FOR UNKNOWN INDICATION
  11. PROBIOTIC [Concomitant]
     Indication: ANTIBIOTIC PROPHYLAXIS
  12. ZYRTEC [Concomitant]
     Indication: HYPERSENSITIVITY
  13. PRILOSEC [Concomitant]
     Indication: ABDOMINAL DISCOMFORT
  14. IMODIUM [Concomitant]
     Indication: DIARRHOEA

REACTIONS (7)
  - ABDOMINAL DISTENSION [None]
  - ABDOMINAL PAIN [None]
  - DEHYDRATION [None]
  - DIARRHOEA [None]
  - INJECTION SITE ERYTHEMA [None]
  - PAIN [None]
  - VOMITING [None]
